FAERS Safety Report 6342160-1 (Version None)
Quarter: 2009Q3

REPORT INFORMATION
  Report Type: 
  Country: None (occurrence: None)
  Receive Date: 20090904
  Receipt Date: 20090904
  Transmission Date: 20100115
  Serious: Yes (Hospitalization)
  Sender: FDA-Public Use
  Company Number: None

PATIENT
  Age: 73 Year
  Sex: Male

DRUGS (2)
  1. BUPIVACAINE [Suspect]
     Indication: PREOPERATIVE CARE
     Dosage: 35 ML ONCE
     Dates: start: 20090717, end: 20090717
  2. FENTANYL [Suspect]
     Indication: PREOPERATIVE CARE
     Dosage: 50 MCG ONCE
     Dates: start: 20090717, end: 20090717

REACTIONS (1)
  - CONVULSION [None]
